FAERS Safety Report 6150984-9 (Version None)
Quarter: 2009Q2

REPORT INFORMATION
  Report Type: 
  Country: None (occurrence: None)
  Receive Date: 20090410
  Receipt Date: 20090213
  Transmission Date: 20091009
  Serious: No
  Sender: FDA-Public Use
  Company Number: A0761944A

PATIENT
  Age: 61 Year
  Sex: Female
  Weight: 79.5 kg

DRUGS (10)
  1. TYKERB [Suspect]
     Indication: BREAST CANCER
     Dosage: 1000MG PER DAY
     Route: 048
     Dates: start: 20081101
  2. HERCEPTIN [Suspect]
     Indication: BREAST CANCER
     Dosage: 500MG EVERY 3 WEEKS
     Route: 042
     Dates: start: 20061001
  3. KLONOPIN [Concomitant]
     Indication: ANXIETY
     Dosage: .5MG PER DAY
     Route: 048
  4. ZOMETA [Concomitant]
     Dosage: 4MG SEE DOSAGE TEXT
     Route: 042
  5. OXYCONTIN [Concomitant]
     Indication: METASTATIC PAIN
     Dosage: 20MG TWICE PER DAY
     Route: 048
  6. LEVOTHYROXINE SODIUM [Concomitant]
     Indication: HYPOTHYROIDISM
     Route: 048
  7. BUPROPION HCL [Concomitant]
     Indication: DEPRESSION
     Route: 048
  8. LEXAPRO [Concomitant]
     Indication: DEPRESSION
     Dosage: 20MG PER DAY
     Route: 048
  9. SENOKOT [Concomitant]
     Indication: CONSTIPATION
     Dosage: 2TAB PER DAY
     Route: 048
  10. PRILOSEC [Concomitant]
     Indication: ILL-DEFINED DISORDER
     Dosage: 20MG TWICE PER DAY
     Route: 048

REACTIONS (1)
  - RASH [None]
